FAERS Safety Report 17696654 (Version 1)
Quarter: 2020Q2

REPORT INFORMATION
  Report Type: Spontaneous
  Country: US (occurrence: US)
  Receive Date: 20200423
  Receipt Date: 20200423
  Transmission Date: 20200714
  Serious: No
  Sender: FDA-Public Use
  Company Number: US-B.I. PHARMACEUTICALS,INC./RIDGEFIELD-2020-US-021148

PATIENT
  Age: 53 Year
  Sex: Female

DRUGS (1)
  1. COMBIVENT [Suspect]
     Active Substance: ALBUTEROL SULFATE\IPRATROPIUM BROMIDE
     Indication: CHRONIC OBSTRUCTIVE PULMONARY DISEASE
     Dosage: 2 SPRAYS BID
     Route: 065
     Dates: start: 2013

REACTIONS (1)
  - Chronic obstructive pulmonary disease [Recovering/Resolving]

NARRATIVE: CASE EVENT DATE: 20200320
